FAERS Safety Report 25240993 (Version 1)
Quarter: 2025Q2

REPORT INFORMATION
  Report Type: Spontaneous
  Country: DE (occurrence: DE)
  Receive Date: 20250425
  Receipt Date: 20250425
  Transmission Date: 20250717
  Serious: Yes (Hospitalization)
  Sender: BIOMARIN
  Company Number: DE-BIOMARINAP-DE-2025-165305

PATIENT

DRUGS (3)
  1. NAGLAZYME [Suspect]
     Active Substance: GALSULFASE
     Indication: Mucopolysaccharidosis VI
     Dosage: 80 MILLIGRAM, QW
     Route: 042
  2. IBUPROFEN [Concomitant]
     Active Substance: IBUPROFEN
     Indication: Product used for unknown indication
  3. INNOHEP [Concomitant]
     Active Substance: TINZAPARIN SODIUM
     Indication: Product used for unknown indication
     Dosage: UNK, QD

REACTIONS (4)
  - Dysplasia [Recovering/Resolving]
  - Osteoarthritis [Recovering/Resolving]
  - Osteonecrosis [Recovering/Resolving]
  - Arthralgia [Recovering/Resolving]

NARRATIVE: CASE EVENT DATE: 20250411
